FAERS Safety Report 25640871 (Version 1)
Quarter: 2025Q3

REPORT INFORMATION
  Report Type: Spontaneous
  Country: US (occurrence: US)
  Receive Date: 20250804
  Receipt Date: 20250804
  Transmission Date: 20251020
  Serious: Yes (Death, Other)
  Sender: AMGEN
  Company Number: US-AMGEN-USASP2025149991

PATIENT

DRUGS (2)
  1. BEVACIZUMAB [Suspect]
     Active Substance: BEVACIZUMAB
     Indication: Hepatocellular carcinoma
     Route: 065
  2. ATEZOLIZUMAB [Concomitant]
     Active Substance: ATEZOLIZUMAB
     Indication: Hepatocellular carcinoma
     Route: 065

REACTIONS (8)
  - Neoplasm malignant [Fatal]
  - Hepatocellular carcinoma [Unknown]
  - Liver transplant rejection [Unknown]
  - Graft versus host disease [Unknown]
  - Colitis [Unknown]
  - Pneumonitis [Unknown]
  - Thyroiditis [Unknown]
  - Off label use [Unknown]
